FAERS Safety Report 24161797 (Version 1)
Quarter: 2024Q3

REPORT INFORMATION
  Report Type: Spontaneous
  Country: US (occurrence: US)
  Receive Date: 20240801
  Receipt Date: 20240801
  Transmission Date: 20241017
  Serious: Yes (Hospitalization, Other)
  Sender: Unknown Manufacturer
  Company Number: US-MICRO LABS LIMITED-ML2023-05820

PATIENT
  Age: 32 Year
  Sex: Female

DRUGS (1)
  1. BUPROPION [Suspect]
     Active Substance: BUPROPION
     Indication: Major depression

REACTIONS (11)
  - Electrocardiogram QT prolonged [Recovering/Resolving]
  - Ejection fraction decreased [Recovering/Resolving]
  - Toxicity to various agents [Recovering/Resolving]
  - Shock [Recovering/Resolving]
  - Cardiotoxicity [Recovering/Resolving]
  - Electrocardiogram QRS complex prolonged [Recovering/Resolving]
  - Generalised tonic-clonic seizure [Recovering/Resolving]
  - Ventricular tachycardia [Recovered/Resolved]
  - Suicide attempt [Unknown]
  - Mental impairment [Unknown]
  - Intentional overdose [Unknown]
